FAERS Safety Report 9322625 (Version 3)
Quarter: 2013Q3

REPORT INFORMATION
  Report Type: Spontaneous
  Country: SG (occurrence: SG)
  Receive Date: 20130531
  Receipt Date: 20130702
  Transmission Date: 20140515
  Serious: No
  Sender: FDA-Public Use
  Company Number: SG-B.I. PHARMACEUTICALS,INC./RIDGEFIELD-2013-BI-15297MD

PATIENT
  Age: 56 Year
  Sex: Male

DRUGS (1)
  1. TRAJENTA [Suspect]
     Dosage: 5 MG

REACTIONS (1)
  - Pancreatitis [Unknown]
